FAERS Safety Report 4749463-2 (Version None)
Quarter: 2005Q3

REPORT INFORMATION
  Report Type: 
  Country: None (occurrence: None)
  Receive Date: 20050822
  Receipt Date: 20050808
  Transmission Date: 20060218
  Serious: Yes (Hospitalization, Disabling)
  Sender: FDA-Public Use
  Company Number: 2005CG01361

PATIENT
  Age: 851 Month
  Sex: Female
  Weight: 60 kg

DRUGS (12)
  1. IRESSA [Suspect]
     Indication: OVARIAN CANCER
     Route: 048
     Dates: start: 20020430, end: 20020509
  2. IRESSA [Suspect]
     Route: 048
     Dates: start: 20020512, end: 20020622
  3. TAXOL [Suspect]
     Indication: OVARIAN CANCER
     Route: 042
     Dates: start: 20020430
  4. PARAPLATIN [Suspect]
     Indication: OVARIAN CANCER
     Route: 042
     Dates: start: 20020430
  5. CARBOPLATINE [Concomitant]
     Indication: OVARIAN CANCER
     Dosage: 6 COURSES
     Dates: start: 19990701, end: 19991201
  6. CARBOPLATINE [Concomitant]
     Dosage: 6 COURSES
     Dates: start: 20030901, end: 20040201
  7. CARBOPLATINE [Concomitant]
     Dosage: 2 COURSES
     Dates: start: 20040901
  8. TAXOL [Concomitant]
     Dosage: 6 COURSES
     Dates: start: 19990701, end: 19991201
  9. PSC 833 [Concomitant]
     Indication: OVARIAN CANCER
     Dosage: 6 COURSES
     Dates: start: 19990701, end: 19991201
  10. OXALIPLATIN [Concomitant]
     Indication: OVARIAN CANCER
     Dosage: 3 COURSES
     Dates: end: 20050303
  11. CAELYX [Concomitant]
     Indication: OVARIAN CANCER
     Dates: start: 20050509, end: 20050606
  12. DEROXAT [Concomitant]

REACTIONS (1)
  - MYELODYSPLASTIC SYNDROME [None]
